FAERS Safety Report 9425030 (Version 1)
Quarter: 2013Q3

REPORT INFORMATION
  Report Type: Spontaneous
  Country: US (occurrence: US)
  Receive Date: 20130729
  Receipt Date: 20130729
  Transmission Date: 20140515
  Serious: Yes (Other)
  Sender: FDA-Public Use
  Company Number: US-PFIZER INC-2013219209

PATIENT
  Age: 33 Year
  Sex: Female
  Weight: 117.91 kg

DRUGS (1)
  1. LYRICA [Suspect]
     Indication: NERVE INJURY
     Dosage: 300 MG, 2X/DAY
     Route: 048
     Dates: start: 2006

REACTIONS (1)
  - Back disorder [Recovering/Resolving]
